FAERS Safety Report 4688373-6 (Version None)
Quarter: 2005Q2

REPORT INFORMATION
  Report Type: 
  Country: None (occurrence: None)
  Receive Date: 20050609
  Receipt Date: 20050524
  Transmission Date: 20051028
  Serious: Yes (Hospitalization)
  Sender: FDA-Public Use
  Company Number: 2005-0008114

PATIENT
  Sex: Male

DRUGS (9)
  1. VIREAD [Suspect]
     Dosage: 300 MG, 1 IN 1 D
     Dates: start: 20041111, end: 20050225
  2. DIDANOSINE [Concomitant]
  3. ATAZANAVIR SULFATE [Concomitant]
  4. RITONAVIR (RITONAVIR) [Concomitant]
  5. PRAVASTATIN [Concomitant]
  6. FENOFIBRATE [Concomitant]
  7. BACTRIM [Concomitant]
  8. SODIUM BICARBONATE IN PLASTIC CONTAINER [Concomitant]
  9. CALCICHEW (CALCIUM CARBONATE) [Concomitant]

REACTIONS (9)
  - BLOOD PHOSPHORUS DECREASED [None]
  - BLOOD POTASSIUM INCREASED [None]
  - DEHYDRATION [None]
  - DIABETES MELLITUS [None]
  - DRUG TOXICITY [None]
  - EATING DISORDER [None]
  - MALAISE [None]
  - RENAL FAILURE ACUTE [None]
  - RENAL TUBULAR NECROSIS [None]
